FAERS Safety Report 20913876 (Version 1)
Quarter: 2022Q2

REPORT INFORMATION
  Report Type: Spontaneous
  Country: MX (occurrence: None)
  Receive Date: 20220604
  Receipt Date: 20220604
  Transmission Date: 20220721
  Serious: Yes (Other)
  Sender: FDA-Public Use
  Company Number: MX-ROCHE-3110638

PATIENT
  Age: 63 Year
  Sex: Female
  Weight: 56 kg

DRUGS (8)
  1. PERTUZUMAB [Suspect]
     Active Substance: PERTUZUMAB
     Indication: Breast cancer
     Dosage: DOSE AND FREQUENCY WERE NOT REPORTED
     Route: 042
  2. ADO-TRASTUZUMAB EMTANSINE [Suspect]
     Active Substance: ADO-TRASTUZUMAB EMTANSINE
     Indication: Breast cancer
     Route: 042
  3. TRASTUZUMAB [Suspect]
     Active Substance: TRASTUZUMAB
     Indication: Breast cancer
     Dosage: DOSE AND FREQUENCY WERE NOT REPORTED. 4 CYCLES;
     Route: 065
     Dates: start: 20201126
  4. DOCETAXEL [Concomitant]
     Active Substance: DOCETAXEL
     Indication: Breast cancer
     Dosage: DOSE AND FREQUENCY WERE NOT REPORTED. 4 CYCLES.
     Dates: start: 20201126
  5. CYCLOPHOSPHAMIDE [Concomitant]
     Active Substance: CYCLOPHOSPHAMIDE
     Indication: Breast cancer
     Dosage: DOSE AND FREQUENCY WERE NOT REPORTED. 4 CYCLES (NOT RECEIVED ON CYCLES 2 AND 3)
     Dates: start: 20201126
  6. LETROZOLE [Concomitant]
     Active Substance: LETROZOLE
     Route: 048
  7. LAPATINIB [Concomitant]
     Active Substance: LAPATINIB
  8. CAPECITABINE [Concomitant]
     Active Substance: CAPECITABINE
     Dosage: DOSE AND FREQUENCY WERE NOT REPORTED
     Route: 048

REACTIONS (6)
  - Breast cancer [Unknown]
  - Radiation pneumonitis [Unknown]
  - Arteriosclerosis [Unknown]
  - Cholelithiasis [Unknown]
  - Osteoarthritis [Unknown]
  - Bronchiectasis [Unknown]

NARRATIVE: CASE EVENT DATE: 20220430
